FAERS Safety Report 4698856-0 (Version None)
Quarter: 2005Q2

REPORT INFORMATION
  Report Type: 
  Country: None (occurrence: None)
  Receive Date: 20050623
  Receipt Date: 20050610
  Transmission Date: 20051028
  Serious: Yes (Other)
  Sender: FDA-Public Use
  Company Number: 2005083354

PATIENT
  Age: 62 Year
  Sex: Female

DRUGS (3)
  1. CARDENALIN (DOXAZOSIN) [Suspect]
     Indication: HYPERTENSION
     Dosage: 4 MG , ORAL
     Route: 048
     Dates: start: 20050304, end: 20050601
  2. ACECOL (TEMOCAPRIL HYDROCHLORIDE) [Suspect]
     Indication: HYPERTENSION
     Dosage: 1 MG, ORAL
     Route: 048
     Dates: start: 20030606, end: 20050601
  3. LASIX [Concomitant]

REACTIONS (2)
  - ATRIAL FIBRILLATION [None]
  - BONE MARROW DEPRESSION [None]
